FAERS Safety Report 14370918 (Version 4)
Quarter: 2018Q4

REPORT INFORMATION
  Report Type: Report from Study
  Country: US (occurrence: US)
  Receive Date: 20180110
  Receipt Date: 20181004
  Transmission Date: 20190204
  Serious: Yes (Other)
  Sender: FDA-Public Use
  Company Number: PHEH2018US000801

PATIENT
  Sex: Female

DRUGS (2)
  1. OTEZLA [Suspect]
     Active Substance: APREMILAST
     Indication: PRODUCT USED FOR UNKNOWN INDICATION
     Route: 065
  2. COSENTYX [Suspect]
     Active Substance: SECUKINUMAB
     Indication: PSORIATIC ARTHROPATHY
     Dosage: UNK UNK, QMO
     Route: 058

REACTIONS (9)
  - Drug ineffective [Unknown]
  - Pain [Unknown]
  - Pruritus generalised [Unknown]
  - Lymphadenopathy [Unknown]
  - Psoriatic arthropathy [Unknown]
  - Eye swelling [Unknown]
  - Skin fissures [Unknown]
  - Glossodynia [Unknown]
  - Eye pruritus [Unknown]
